FAERS Safety Report 15140317 (Version 6)
Quarter: 2018Q3

REPORT INFORMATION
  Report Type: Spontaneous
  Country: FR (occurrence: FR)
  Receive Date: 20180713
  Receipt Date: 20180926
  Transmission Date: 20181010
  Serious: Yes (Other)
  Sender: FDA-Public Use
  Company Number: FR-PFIZER INC-2018282345

PATIENT
  Age: 53 Year
  Sex: Male

DRUGS (9)
  1. METHOTREXATE SODIUM. [Suspect]
     Active Substance: METHOTREXATE SODIUM
     Indication: CUTANEOUS SARCOIDOSIS
  2. PREDNISONE. [Concomitant]
     Active Substance: PREDNISONE
     Indication: CUTANEOUS SARCOIDOSIS
  3. CLINDAMYCIN. [Concomitant]
     Active Substance: CLINDAMYCIN
     Indication: CELLULITIS
     Dosage: UNK (OVER 4 WEEKS)
  4. AMOXICILLIN/CLAVULANIC ACID [Concomitant]
     Active Substance: AMOXICILLIN\CLAVULANIC ACID
     Indication: CELLULITIS
     Dosage: UNK (OVER 4 WEEKS)
  5. PREDNISONE. [Concomitant]
     Active Substance: PREDNISONE
     Indication: PULMONARY SARCOIDOSIS
     Dosage: 5 MG, DAILY (STANDARD TREATMENT)
     Dates: start: 2011, end: 201211
  6. PREDNISONE. [Concomitant]
     Active Substance: PREDNISONE
     Indication: CELLULITIS
  7. SILVER SULFADIAZINE. [Concomitant]
     Active Substance: SILVER SULFADIAZINE
     Indication: WOUND
     Dosage: UNK, DAILY (APPLICATION STARTED FROM THE DAY OF ADMISSION TO FIRST GRAFTING PROCEDURE IN JAN 2013)
     Route: 061
     Dates: start: 201301
  8. FOLIC ACID. [Concomitant]
     Active Substance: FOLIC ACID
     Indication: CELLULITIS
     Dosage: 25 MG, WEEKLY (STANDARD TREATMENT, 3 DAYS AFTER METHOTREXATE INJECTION)
     Dates: start: 2010
  9. METHOTREXATE SODIUM. [Suspect]
     Active Substance: METHOTREXATE SODIUM
     Indication: PULMONARY SARCOIDOSIS
     Dosage: 25 MG, WEEKLY (STANDARD TREATMENT SINCE 2010)
     Route: 058
     Dates: start: 2010, end: 201409

REACTIONS (2)
  - Product use in unapproved indication [Recovered/Resolved]
  - Skin graft failure [Recovered/Resolved]
